FAERS Safety Report 13509337 (Version 1)
Quarter: 2017Q2

REPORT INFORMATION
  Report Type: Spontaneous
  Country: US (occurrence: US)
  Receive Date: 20170503
  Receipt Date: 20170503
  Transmission Date: 20170830
  Serious: No
  Sender: FDA-Public Use
  Company Number: US-SA-2017SA016501

PATIENT
  Sex: Male
  Weight: 94.8 kg

DRUGS (15)
  1. PRALUENT [Suspect]
     Active Substance: ALIROCUMAB
     Indication: BLOOD CHOLESTEROL INCREASED
     Route: 058
     Dates: start: 2016
  2. BABY ASPIRIN [Concomitant]
     Active Substance: ASPIRIN
  3. ELIQUIS [Concomitant]
     Active Substance: APIXABAN
  4. GINKGO BILOBA [Concomitant]
     Active Substance: GINKGO
  5. FISH OIL [Concomitant]
     Active Substance: FISH OIL
  6. AMLODIPINE [Concomitant]
     Active Substance: AMLODIPINE BESYLATE
  7. VITAMIN B12 [Concomitant]
     Active Substance: CYANOCOBALAMIN
  8. RED YEAST RICE [Concomitant]
     Active Substance: DIETARY SUPPLEMENT
  9. VITAMIN E [Concomitant]
     Active Substance: .ALPHA.-TOCOPHEROL
  10. BENAZEPRIL [Concomitant]
     Active Substance: BENAZEPRIL HYDROCHLORIDE
  11. COQ10 [Concomitant]
     Active Substance: UBIDECARENONE
  12. MINERALS NOS [Concomitant]
     Active Substance: MINERALS
  13. GRAPE SEED EXTRACT [Concomitant]
     Active Substance: GRAPE SEED EXTRACT
  14. SAW PALMETTO [Concomitant]
     Active Substance: HERBALS\SAW PALMETTO
  15. ALIROCUMAB PREFILLED PEN [Concomitant]
     Active Substance: ALIROCUMAB
     Indication: BLOOD CHOLESTEROL INCREASED
     Dates: start: 2016

REACTIONS (1)
  - Joint stiffness [Unknown]
